FAERS Safety Report 5366747-8 (Version None)
Quarter: 2007Q2

REPORT INFORMATION
  Report Type: 
  Country: None (occurrence: None)
  Receive Date: 20070622
  Receipt Date: 20070222
  Transmission Date: 20071010
  Serious: No
  Sender: FDA-Public Use
  Company Number: A0640577A

PATIENT
  Age: 26 Year
  Sex: Male

DRUGS (3)
  1. THORAZINE [Suspect]
     Route: 048
  2. THORAZINE [Suspect]
     Route: 054
  3. NO CONCURRENT MEDICATION [Concomitant]

REACTIONS (6)
  - AMNESIA [None]
  - HYPOKINESIA [None]
  - IMPRISONMENT [None]
  - LOSS OF EMPLOYMENT [None]
  - MENTAL IMPAIRMENT [None]
  - THEFT [None]
